FAERS Safety Report 9105526 (Version 1)
Quarter: 2013Q1

REPORT INFORMATION
  Report Type: Spontaneous
  Country: FR (occurrence: FR)
  Receive Date: 20130220
  Receipt Date: 20130220
  Transmission Date: 20140127
  Serious: Yes (Hospitalization, Other)
  Sender: FDA-Public Use
  Company Number: FR-ASTRAZENECA-2013SE10713

PATIENT
  Age: 3166 Week
  Sex: Female

DRUGS (2)
  1. XEROQUEL [Suspect]
     Indication: BIPOLAR I DISORDER
     Route: 048
     Dates: start: 20121217, end: 20121218
  2. IMOVANE [Concomitant]

REACTIONS (6)
  - Fall [Recovered/Resolved]
  - Nausea [Recovered/Resolved]
  - Confusional state [Recovered/Resolved]
  - Formication [Recovered/Resolved]
  - Vertigo CNS origin [Recovered/Resolved]
  - Dyskinesia [Recovered/Resolved]
